FAERS Safety Report 16526922 (Version 1)
Quarter: 2019Q3

REPORT INFORMATION
  Report Type: Spontaneous
  Country: FR (occurrence: FR)
  Receive Date: 20190703
  Receipt Date: 20190703
  Transmission Date: 20191004
  Serious: Yes (Other)
  Sender: FDA-Public Use
  Company Number: FR-MYLANLABS-2019M1061909

PATIENT
  Age: 62 Year
  Sex: Male

DRUGS (2)
  1. CARVEDILOL. [Suspect]
     Active Substance: CARVEDILOL
     Indication: CARDIOMYOPATHY
     Dosage: 50 MILLIGRAM, QD
     Route: 048
     Dates: start: 20181209, end: 20190125
  2. RAMIPRIL MYLAN 1,25 MG, COMPRIM? [Suspect]
     Active Substance: RAMIPRIL
     Indication: CARDIOMYOPATHY
     Dosage: 2.5 MILLIGRAM, QD
     Route: 048
     Dates: start: 20181204, end: 20190125

REACTIONS (1)
  - Dermatitis exfoliative generalised [Recovering/Resolving]

NARRATIVE: CASE EVENT DATE: 20190101
